FAERS Safety Report 5513246-6 (Version None)
Quarter: 2007Q4

REPORT INFORMATION
  Report Type: 
  Country: None (occurrence: None)
  Receive Date: 20071112
  Receipt Date: 20071030
  Transmission Date: 20080405
  Serious: Yes (Hospitalization)
  Sender: FDA-Public Use
  Company Number: US-ELI_LILLY_AND_COMPANY-US200711000078

PATIENT
  Sex: Male

DRUGS (2)
  1. PROZAC [Suspect]
     Indication: DEPRESSION
     Route: 048
  2. YOHIMBINE [Concomitant]
     Indication: SEXUAL DYSFUNCTION

REACTIONS (2)
  - HOSPITALISATION [None]
  - SEXUAL DYSFUNCTION [None]
